FAERS Safety Report 4889397-6 (Version None)
Quarter: 2006Q1

REPORT INFORMATION
  Report Type: 
  Country: None (occurrence: None)
  Receive Date: 20060120
  Receipt Date: 20060120
  Transmission Date: 20060701
  Serious: No
  Sender: FDA-Public Use
  Company Number: None

PATIENT
  Age: 15 Year
  Sex: Male
  Weight: 60.8 kg

DRUGS (1)
  1. PRAVASTATIN [Suspect]
     Indication: DYSLIPIDAEMIA
     Dosage: 10 MG   ONCE A DAY  PO
     Route: 048
     Dates: start: 20041201, end: 20051216

REACTIONS (2)
  - ASTHENIA [None]
  - MYALGIA [None]
